FAERS Safety Report 4548457-X (Version None)
Quarter: 2004Q4

REPORT INFORMATION
  Report Type: 
  Country: None (occurrence: None)
  Receive Date: 20041227
  Receipt Date: 20041022
  Transmission Date: 20050328
  Serious: Yes (Hospitalization)
  Sender: FDA-Public Use
  Company Number: 04P-163-0278824-00

PATIENT
  Age: 77 Year
  Sex: Male

DRUGS (11)
  1. HUMIRA [Suspect]
     Indication: RHEUMATOID ARTHRITIS
     Dosage: 40 MG, 1 IN 2 WK, SUBCUTANEOUS
     Route: 058
     Dates: start: 20040610, end: 20040814
  2. TOCOPHEROL CONCENTRATE CAP [Concomitant]
  3. IRON [Concomitant]
  4. HYDROXYCHLOROQUINE PHOSPHATE [Concomitant]
  5. AMLODIPINE BESYLATE [Concomitant]
  6. ACETAMINOPHEN [Concomitant]
  7. NODAWOL [Concomitant]
  8. FLUTICASONE PROPIONATE [Concomitant]
  9. MULTI-VITAMINS [Concomitant]
  10. PROPACET 100 [Concomitant]
  11. CALCIU WITH VITAMIN D [Concomitant]

REACTIONS (1)
  - DYSPNOEA [None]
